FAERS Safety Report 8386133-6 (Version None)
Quarter: 2012Q2

REPORT INFORMATION
  Report Type: 
  Country: None (occurrence: None)
  Receive Date: 20120525
  Receipt Date: 20120517
  Transmission Date: 20120825
  Serious: Yes (Disabling, Other)
  Sender: FDA-Public Use
  Company Number: JP-VERTEX PHARMACEUTICALS INC.-AE-2012-004558

PATIENT
  Age: 68 Year
  Sex: Male

DRUGS (12)
  1. TELAVIC (TELAPREVIR) [Suspect]
     Indication: HEPATITIS C
     Route: 048
     Dates: start: 20120202, end: 20120412
  2. PEGINTERFERON ALFA-2B [Concomitant]
     Route: 051
     Dates: start: 20120202
  3. ACTOS [Concomitant]
     Route: 048
  4. REBETOL [Concomitant]
     Indication: HEPATITIS C
     Route: 048
     Dates: start: 20120202, end: 20120229
  5. REBETOL [Concomitant]
     Route: 048
     Dates: start: 20120406, end: 20120419
  6. TELAVIC (TELAPREVIR) [Suspect]
     Route: 048
     Dates: start: 20120413, end: 20120426
  7. VOLTAREN [Concomitant]
     Route: 054
     Dates: start: 20120202, end: 20120202
  8. REBETOL [Concomitant]
     Route: 048
     Dates: start: 20120301, end: 20120405
  9. EPADEL S [Concomitant]
     Route: 048
  10. ACTOS [Concomitant]
     Route: 048
  11. REBETOL [Concomitant]
     Route: 048
     Dates: start: 20120420
  12. EGLUCON [Concomitant]
     Route: 048

REACTIONS (3)
  - SKULL FRACTURED BASE [None]
  - EAR CANAL ABRASION [None]
  - SUBDURAL HAEMATOMA [None]
